FAERS Safety Report 11592830 (Version 2)
Quarter: 2015Q4

REPORT INFORMATION
  Report Type: Report from Study
  Country: US (occurrence: US)
  Receive Date: 20151005
  Receipt Date: 20151021
  Transmission Date: 20160304
  Serious: Yes (Hospitalization)
  Sender: FDA-Public Use
  Company Number: US-BIOGENIDEC-2015BI133065

PATIENT
  Age: 45 Year
  Sex: Female

DRUGS (33)
  1. BENADRYL [Concomitant]
     Active Substance: DIPHENHYDRAMINE HYDROCHLORIDE
  2. VITAMIN B12 [Concomitant]
     Active Substance: CYANOCOBALAMIN
  3. DILAUDID [Concomitant]
     Active Substance: HYDROMORPHONE HYDROCHLORIDE
  4. PROAIR HFA [Concomitant]
     Active Substance: ALBUTEROL SULFATE
  5. SYNTHROID [Concomitant]
     Active Substance: LEVOTHYROXINE SODIUM
  6. VALIUM [Concomitant]
     Active Substance: DIAZEPAM
  7. VITAMIN D [Concomitant]
     Active Substance: CHOLECALCIFEROL
  8. ZOLPIDEM TARTRATE. [Concomitant]
     Active Substance: ZOLPIDEM TARTRATE
  9. FLUOXETINE HCI [Concomitant]
     Active Substance: FLUOXETINE HYDROCHLORIDE
  10. MARINOL [Concomitant]
     Active Substance: DRONABINOL
  11. MIRENA [Concomitant]
     Active Substance: LEVONORGESTREL
  12. AMBIEN CR [Concomitant]
     Active Substance: ZOLPIDEM TARTRATE
  13. FOLIC ACID. [Concomitant]
     Active Substance: FOLIC ACID
  14. PRE-NATAL FORMULA [Concomitant]
  15. TECFIDERA [Suspect]
     Active Substance: DIMETHYL FUMARATE
     Indication: MULTIPLE SCLEROSIS
     Route: 048
     Dates: start: 20130613
  16. FIORICET [Concomitant]
     Active Substance: ACETAMINOPHEN\BUTALBITAL\CAFFEINE
  17. LYRICA [Concomitant]
     Active Substance: PREGABALIN
  18. OXCARBAZEPINE. [Concomitant]
     Active Substance: OXCARBAZEPINE
  19. XOPENEX CONCENTRATE [Concomitant]
  20. BUSPIRONE HCI [Concomitant]
  21. DIAZEPAM. [Concomitant]
     Active Substance: DIAZEPAM
  22. HYDROCORTISONE. [Concomitant]
     Active Substance: HYDROCORTISONE
  23. ZANTAC [Concomitant]
     Active Substance: RANITIDINE HYDROCHLORIDE
  24. IBUPROFEN. [Concomitant]
     Active Substance: IBUPROFEN
  25. LANSOPRAZOLE. [Concomitant]
     Active Substance: LANSOPRAZOLE
  26. LEVALBUTEROL. [Concomitant]
     Active Substance: LEVALBUTEROL
  27. PROMETHAZINE HCI [Concomitant]
  28. ASPIR LOW [Concomitant]
     Active Substance: ASPIRIN
  29. KEPPRA [Concomitant]
     Active Substance: LEVETIRACETAM
  30. PREVACID [Concomitant]
     Active Substance: LANSOPRAZOLE
  31. RANITIDINE HCI [Concomitant]
  32. TOPAMAX TOPIRAMATE [Concomitant]
  33. ZANAFLEX [Concomitant]
     Active Substance: TIZANIDINE HYDROCHLORIDE

REACTIONS (2)
  - Drug ineffective [Not Recovered/Not Resolved]
  - Multiple sclerosis relapse [Not Recovered/Not Resolved]
